FAERS Safety Report 12752721 (Version 1)
Quarter: 2016Q3

REPORT INFORMATION
  Report Type: Spontaneous
  Country: US (occurrence: US)
  Receive Date: 20160916
  Receipt Date: 20160916
  Transmission Date: 20161109
  Serious: Yes (Other)
  Sender: FDA-Public Use
  Company Number: None

PATIENT
  Age: 58 Year
  Sex: Female
  Weight: 85.7 kg

DRUGS (3)
  1. IXAZOMIB [Suspect]
     Active Substance: IXAZOMIB
     Indication: HORMONE REFRACTORY BREAST CANCER
     Route: 048
     Dates: start: 20160509, end: 20160902
  2. IXAZOMIB [Suspect]
     Active Substance: IXAZOMIB
     Indication: BREAST CANCER METASTATIC
     Route: 048
     Dates: start: 20160509, end: 20160902
  3. FULVESTRANT [Concomitant]
     Active Substance: FULVESTRANT

REACTIONS (1)
  - Pulmonary hypertension [None]

NARRATIVE: CASE EVENT DATE: 20160906
